FAERS Safety Report 13071647 (Version 1)
Quarter: 2016Q4

REPORT INFORMATION
  Report Type: Spontaneous
  Country: FR (occurrence: FR)
  Receive Date: 20161229
  Receipt Date: 20161229
  Transmission Date: 20170207
  Serious: Yes (Life-Threatening)
  Sender: FDA-Public Use
  Company Number: FR-JNJFOC-20161222562

PATIENT
  Age: 51 Year
  Sex: Male

DRUGS (11)
  1. CORTANCYL [Concomitant]
     Active Substance: PREDNISONE
     Indication: DYSPNOEA
     Dosage: INTRODUCED IN JUN (YEAR UNSPECIFIED), THEN STOPPED
     Route: 048
  2. SERESTA [Concomitant]
     Active Substance: OXAZEPAM
     Route: 048
     Dates: start: 20160922
  3. LIORESAL [Concomitant]
     Active Substance: BACLOFEN
     Route: 048
     Dates: start: 20160815
  4. RISPERDAL [Suspect]
     Active Substance: RISPERIDONE
     Indication: AGITATION
     Route: 048
     Dates: start: 20161016, end: 20161020
  5. HALDOL [Suspect]
     Active Substance: HALOPERIDOL
     Indication: AGITATION
     Route: 048
     Dates: start: 20161016, end: 20161020
  6. LYRICA [Concomitant]
     Active Substance: PREGABALIN
     Route: 048
     Dates: start: 20160815
  7. DIGOXINE NATIVELLE [Concomitant]
     Active Substance: DIGOXIN
     Route: 048
     Dates: start: 20161016
  8. LOVENOX [Concomitant]
     Active Substance: ENOXAPARIN SODIUM
     Route: 058
     Dates: start: 20160811
  9. CORTANCYL [Concomitant]
     Active Substance: PREDNISONE
     Indication: DYSPNOEA
     Dosage: REINTRODUCED ON 27 SEP (YEAR UNSPECIFIED)
     Route: 048
  10. RIFINAH [Concomitant]
     Active Substance: ISONIAZID\RIFAMPIN
     Route: 048
     Dates: start: 20160722
  11. BISOCE [Concomitant]
     Active Substance: BISOPROLOL
     Route: 048
     Dates: start: 20161016

REACTIONS (5)
  - Off label use [Unknown]
  - Choking [Recovered/Resolved with Sequelae]
  - Product use issue [Unknown]
  - Respiratory distress [Unknown]
  - Dyskinesia [Recovered/Resolved with Sequelae]

NARRATIVE: CASE EVENT DATE: 20161016
